FAERS Safety Report 10025557 (Version 2)
Quarter: 2014Q2

REPORT INFORMATION
  Report Type: Spontaneous
  Country: DE (occurrence: DE)
  Receive Date: 20140320
  Receipt Date: 20140502
  Transmission Date: 20141212
  Serious: Yes (Other)
  Sender: FDA-Public Use
  Company Number: DE-SA-2014SA032985

PATIENT
  Age: 51 Year
  Sex: Male
  Weight: 56 kg

DRUGS (6)
  1. MABCAMPATH [Suspect]
     Indication: RELAPSING-REMITTING MULTIPLE SCLEROSIS
     Dosage: FOR 6 TO 8 WEEKS
     Route: 042
     Dates: start: 20110106, end: 20110404
  2. MABCAMPATH [Suspect]
     Indication: RELAPSING-REMITTING MULTIPLE SCLEROSIS
     Dosage: FOR 6 TO 8 WEEKS
     Route: 042
     Dates: start: 20110427, end: 20110427
  3. MABCAMPATH [Suspect]
     Indication: RELAPSING-REMITTING MULTIPLE SCLEROSIS
     Dosage: FOR 6 TO 8 WEEKS
     Route: 042
     Dates: start: 20110504, end: 20110504
  4. MABCAMPATH [Suspect]
     Indication: RELAPSING-REMITTING MULTIPLE SCLEROSIS
     Dosage: FOR 6 TO 8 WEEKS
     Route: 042
     Dates: start: 20110511, end: 20110511
  5. IBUPROFEN ^STADA^ [Concomitant]
  6. CIPRAMIL [Concomitant]
     Dosage: FILM COATED TABLET

REACTIONS (3)
  - Seminoma [Recovered/Resolved]
  - Testicular pain [Recovered/Resolved]
  - Testicular swelling [Recovered/Resolved]
